FAERS Safety Report 14055392 (Version 1)
Quarter: 2017Q4

REPORT INFORMATION
  Report Type: Spontaneous
  Country: US (occurrence: US)
  Receive Date: 20171006
  Receipt Date: 20171006
  Transmission Date: 20180321
  Serious: No
  Sender: FDA-Public Use
  Company Number: US-JNJFOC-20170816677

PATIENT
  Age: 66 Year
  Sex: Female
  Weight: 54.43 kg

DRUGS (3)
  1. WOMENS ROGAINE UNSCENTED [Suspect]
     Active Substance: MINOXIDIL
     Indication: ALOPECIA
     Route: 061
     Dates: start: 20170822
  2. WOMENS ROGAINE UNSCENTED [Suspect]
     Active Substance: MINOXIDIL
     Indication: ALOPECIA
     Dosage: A LITTLE MORE THAN A 1/2 CAPFUL, FOR 1 X A DAY
     Route: 061
     Dates: start: 2017, end: 20170815
  3. WOMENS ROGAINE UNSCENTED [Suspect]
     Active Substance: MINOXIDIL
     Indication: ALOPECIA
     Dosage: A LITTLE MORE THAN A 1/2 CAPFUL, FOR 81/2 MONTHS
     Route: 061
     Dates: start: 20161101, end: 2017

REACTIONS (17)
  - Skin disorder [Recovered/Resolved]
  - Weight increased [Recovered/Resolved]
  - Heart rate increased [Recovered/Resolved]
  - Overdose [Unknown]
  - Dry skin [Recovered/Resolved]
  - Vision blurred [Recovered/Resolved]
  - Drug effect incomplete [Unknown]
  - Skin wrinkling [Recovered/Resolved]
  - Headache [Recovered/Resolved]
  - Joint swelling [Recovered/Resolved]
  - Peripheral swelling [Recovered/Resolved]
  - Palpitations [Recovered/Resolved]
  - Alopecia [Not Recovered/Not Resolved]
  - Asthenia [Recovered/Resolved]
  - Inappropriate schedule of drug administration [Recovered/Resolved]
  - Dyspnoea [Recovered/Resolved]
  - Hair disorder [Recovered/Resolved]
